FAERS Safety Report 4465878-4 (Version None)
Quarter: 2004Q4

REPORT INFORMATION
  Report Type: 
  Country: None (occurrence: None)
  Receive Date: 20041001
  Receipt Date: 20041001
  Transmission Date: 20050328
  Serious: Yes (Hospitalization)
  Sender: FDA-Public Use
  Company Number: None

PATIENT
  Age: 80 Year
  Sex: Male
  Weight: 80.2867 kg

DRUGS (18)
  1. REOPRO [Suspect]
     Indication: RENAL ARTERY STENOSIS
     Dosage: 20 MG BOLUS
     Route: 040
     Dates: start: 20040603
  2. PLACEBO [Suspect]
  3. REOPRO [Suspect]
     Indication: RENAL ARTERY STENOSIS
     Dosage: 7.3 MG INFUSION
     Route: 042
     Dates: start: 20040603
  4. PLACEBO [Suspect]
  5. PLAVIX [Concomitant]
  6. ASPIRIN [Concomitant]
  7. LISINOPRIL [Concomitant]
  8. LIPITOR [Concomitant]
  9. GLUCOPHAGE [Concomitant]
  10. ATENOLOL [Concomitant]
  11. FELODIPINE [Concomitant]
  12. DOXEPIN HCL [Concomitant]
  13. HYDROCHLOROTHIAZIDE [Concomitant]
  14. GLIPIZIDE [Concomitant]
  15. THEOPHYLLINE [Concomitant]
  16. VERSED [Concomitant]
  17. DILAUDID [Concomitant]
  18. HEPARIN [Concomitant]

REACTIONS (2)
  - CHEST PAIN [None]
  - CORONARY ARTERY STENOSIS [None]
